FAERS Safety Report 11568353 (Version 1)
Quarter: 2015Q3

REPORT INFORMATION
  Report Type: Other
  Country: TR (occurrence: TR)
  Receive Date: 20150929
  Receipt Date: 20150929
  Transmission Date: 20151125
  Serious: Yes (Hospitalization)
  Sender: FDA-Public Use
  Company Number: TR-LUPIN PHARMACEUTICALS INC.-2015-02949

PATIENT
  Age: 28 Year
  Sex: Male

DRUGS (4)
  1. TRAMADOL. [Suspect]
     Active Substance: TRAMADOL
     Indication: PAIN
     Dosage: 100 MG /DAY
     Route: 065
  2. QUETIAPINE [Suspect]
     Active Substance: QUETIAPINE
     Indication: MANIA
     Dosage: 300 MG /DAY
     Route: 065
  3. TRAMADOL. [Suspect]
     Active Substance: TRAMADOL
     Dosage: 100 MG /DAY
     Route: 065
  4. DIVALPROEX [Suspect]
     Active Substance: DIVALPROEX SODIUM
     Indication: MANIA
     Dosage: 1000 MG /DAY
     Route: 065

REACTIONS (2)
  - Sedation [Unknown]
  - Mania [Recovered/Resolved]
